FAERS Safety Report 24807558 (Version 1)
Quarter: 2025Q1

REPORT INFORMATION
  Report Type: Spontaneous
  Country: US (occurrence: US)
  Receive Date: 20250105
  Receipt Date: 20250105
  Transmission Date: 20250408
  Serious: Yes (Hospitalization)
  Sender: JOHNSON AND JOHNSON
  Company Number: US-JNJFOC-20241277867

PATIENT
  Age: 67 Year
  Sex: Male
  Weight: 63.5 kg

DRUGS (19)
  1. OPSUMIT [Suspect]
     Active Substance: MACITENTAN
     Indication: Product used for unknown indication
     Route: 048
  2. TYVASO DPI [Suspect]
     Active Substance: TREPROSTINIL
     Indication: Pulmonary arterial hypertension
     Dates: start: 20240510
  3. MOVANTIK [Concomitant]
     Active Substance: NALOXEGOL OXALATE
  4. DULOXETINE HCL [Concomitant]
  5. KETOCONAZOLE [Concomitant]
     Active Substance: KETOCONAZOLE
  6. HYDROCORTISONE-ALOE [Concomitant]
  7. ACETAMINOPHEN [Concomitant]
     Active Substance: ACETAMINOPHEN
  8. NARCAN [Concomitant]
     Active Substance: NALOXONE HYDROCHLORIDE
  9. ROPINIROLE [Concomitant]
     Active Substance: ROPINIROLE
  10. TERBINAFINE HYDROCHLORIDE [Concomitant]
     Active Substance: TERBINAFINE HYDROCHLORIDE
  11. METRONIDAZOLE [Concomitant]
     Active Substance: METRONIDAZOLE
  12. WEGOVY [Concomitant]
     Active Substance: SEMAGLUTIDE
  13. ALLOPURINOL [Concomitant]
     Active Substance: ALLOPURINOL
  14. LACTIC ACID [Concomitant]
     Active Substance: LACTIC ACID
  15. ELIQUIS [Concomitant]
     Active Substance: APIXABAN
  16. GABAPENTIN [Concomitant]
     Active Substance: GABAPENTIN
  17. OPSUMIT [Concomitant]
     Active Substance: MACITENTAN
  18. FUROSEMIDE [Concomitant]
     Active Substance: FUROSEMIDE
  19. METHADONE HYDROCHLORIDE [Concomitant]
     Active Substance: METHADONE HYDROCHLORIDE

REACTIONS (1)
  - Hospitalisation [Unknown]

NARRATIVE: CASE EVENT DATE: 20241127
